FAERS Safety Report 25189040 (Version 1)
Quarter: 2025Q2

REPORT INFORMATION
  Report Type: Spontaneous
  Country: CH (occurrence: CH)
  Receive Date: 20250411
  Receipt Date: 20250411
  Transmission Date: 20250716
  Serious: Yes (Other)
  Sender: LEGACY PHARMACEUTICAL PACKAGING
  Company Number: CH-LEGACY PHARMA INC. SEZC-LGP202503-000086

PATIENT
  Age: 66 Year
  Sex: Male

DRUGS (3)
  1. AZATHIOPRINE [Suspect]
     Active Substance: AZATHIOPRINE
     Indication: Colitis ulcerative
     Dosage: 100 MILLIGRAM, DAILY
     Route: 065
     Dates: start: 199708
  2. AZATHIOPRINE [Suspect]
     Active Substance: AZATHIOPRINE
     Dosage: 50 MILLIGRAM, DAILY
     Route: 065
     Dates: start: 199706
  3. AZATHIOPRINE [Suspect]
     Active Substance: AZATHIOPRINE
     Dosage: 200 MILLIGRAM, DAILY (2.2 MG/KG/DAY))
     Route: 065
     Dates: start: 199904

REACTIONS (4)
  - Nodular regenerative hyperplasia [Unknown]
  - Venoocclusive disease [Unknown]
  - Hepatocellular carcinoma [Unknown]
  - Product use in unapproved indication [Unknown]
